FAERS Safety Report 16920580 (Version 2)
Quarter: 2019Q4

REPORT INFORMATION
  Report Type: Report from Study
  Country: JP (occurrence: JP)
  Receive Date: 20191015
  Receipt Date: 20191211
  Transmission Date: 20200122
  Serious: Yes (Hospitalization)
  Sender: FDA-Public Use
  Company Number: PHJP2019JP012875

PATIENT
  Age: 75 Year
  Sex: Male
  Weight: 45.6 kg

DRUGS (10)
  1. LCZ696 [Suspect]
     Active Substance: SACUBITRIL\VALSARTAN
     Dosage: 100 MG, BID
     Route: 048
     Dates: start: 20190121
  2. LANSOPRAZOLE OD TAB. 15MG ^TAKEDA TEVA^ [Concomitant]
     Indication: PROPHYLAXIS
     Dosage: 15 MG, QD
     Route: 048
     Dates: start: 20160609
  3. LCZ696 [Suspect]
     Active Substance: SACUBITRIL\VALSARTAN
     Indication: CARDIAC FAILURE
     Dosage: 50 MG, BID
     Route: 048
     Dates: start: 20161014
  4. SELIS TABLETS [Suspect]
     Active Substance: ENALAPRIL MALEATE
     Indication: CARDIAC FAILURE
     Dosage: UNK
     Route: 048
     Dates: start: 20161028, end: 20190120
  5. LCZ696 [Suspect]
     Active Substance: SACUBITRIL\VALSARTAN
     Dosage: 200 MG, BID
     Route: 048
     Dates: start: 20190215, end: 20190920
  6. ROSUVASTATIN OD TABLETS?DSEP? [Concomitant]
     Indication: DYSLIPIDAEMIA
     Dosage: 5 MG, QD
     Route: 048
     Dates: start: 20160615
  7. EFIENT [Concomitant]
     Active Substance: PRASUGREL HYDROCHLORIDE
     Indication: MYOCARDIAL INFARCTION
     Dosage: 3.75 MG, QD
     Route: 048
     Dates: start: 20160623
  8. SELARA [Concomitant]
     Active Substance: EPLERENONE
     Indication: CARDIAC FAILURE
     Dosage: 25 MG, QD
     Route: 048
     Dates: start: 20170422
  9. BAYASPIRIN [Concomitant]
     Active Substance: ASPIRIN
     Indication: MYOCARDIAL INFARCTION
     Dosage: 100 MG, QD
     Route: 048
     Dates: start: 20160613
  10. BISOPROLOL [Concomitant]
     Active Substance: BISOPROLOL
     Indication: CARDIAC FAILURE
     Dosage: 0.625 MG, QD
     Route: 048
     Dates: start: 20160613

REACTIONS (1)
  - Pancreatic carcinoma [Not Recovered/Not Resolved]

NARRATIVE: CASE EVENT DATE: 20190920
